FAERS Safety Report 6359233-X (Version None)
Quarter: 2009Q3

REPORT INFORMATION
  Report Type: 
  Country: None (occurrence: None)
  Receive Date: 20090917
  Receipt Date: 20090910
  Transmission Date: 20100115
  Serious: Yes (Other)
  Sender: FDA-Public Use
  Company Number: PHHO2009FR11124

PATIENT
  Sex: Female
  Weight: 57 kg

DRUGS (10)
  1. ZOLEDRONIC ACID [Suspect]
     Indication: BONE SARCOMA
     Dosage: 3 G
     Route: 042
     Dates: start: 20090408
  2. HOLOXAN [Suspect]
     Dosage: 2010 G
     Route: 042
     Dates: start: 20090402, end: 20090806
  3. CISPLATIN [Suspect]
     Dosage: 170 MG
     Route: 042
     Dates: start: 20090401, end: 20090624
  4. TIENAM [Concomitant]
  5. ROCEPHIN [Concomitant]
  6. AMIKACIN [Concomitant]
  7. ACETAMINOPHEN [Concomitant]
  8. ONDANSETRON [Concomitant]
     Indication: NAUSEA
  9. ADRIBLASTIN [Concomitant]
  10. VEPESID [Concomitant]

REACTIONS (1)
  - RENAL TUBULAR DISORDER [None]
